FAERS Safety Report 5627547-4 (Version None)
Quarter: 2008Q1

REPORT INFORMATION
  Report Type: 
  Country: None (occurrence: None)
  Receive Date: 20080215
  Receipt Date: 20071203
  Transmission Date: 20080703
  Serious: No
  Sender: FDA-Public Use
  Company Number: A0696993A

PATIENT
  Age: 33 Year
  Sex: Male

DRUGS (2)
  1. COREG CR [Suspect]
     Indication: CARDIOMYOPATHY
     Dosage: 20MG PER DAY
     Route: 048
     Dates: start: 20070904, end: 20070920
  2. ALDACTONE [Concomitant]

REACTIONS (1)
  - RASH GENERALISED [None]
